FAERS Safety Report 9050481 (Version 2)
Quarter: 2013Q3

REPORT INFORMATION
  Report Type: Spontaneous
  Country: US (occurrence: US)
  Receive Date: 20130205
  Receipt Date: 20130708
  Transmission Date: 20140515
  Serious: No
  Sender: FDA-Public Use
  Company Number: US-JNJFOC-20130113353

PATIENT
  Age: 45 Year
  Sex: Female
  Weight: 58.51 kg

DRUGS (8)
  1. SANDOZ FENTANYL TRANSDERMAL SYSTEM [Suspect]
     Indication: INTERVERTEBRAL DISC DEGENERATION
     Route: 062
     Dates: start: 2002
  2. SANDOZ FENTANYL TRANSDERMAL SYSTEM [Suspect]
     Indication: INTERVERTEBRAL DISC DEGENERATION
     Route: 062
     Dates: end: 2012
  3. SANDOZ FENTANYL TRANSDERMAL SYSTEM [Suspect]
     Indication: INTERVERTEBRAL DISC DEGENERATION
     Route: 062
     Dates: start: 2012
  4. VICODIN HP [Concomitant]
     Indication: PAIN
     Dosage: EVERY 4 HOURS AS NEEDED
     Route: 048
     Dates: start: 2001, end: 2012
  5. ZOLOFT [Concomitant]
     Indication: PANIC ATTACK
     Route: 048
  6. ZOLOFT [Concomitant]
     Indication: ANXIETY
     Route: 048
  7. NORCO [Concomitant]
     Indication: PAIN
     Dosage: 10-325 MG EVERY 4 HOURS AS NEEDED
     Route: 048
     Dates: start: 2012
  8. DIAZEPAM [Concomitant]
     Indication: MUSCLE SPASMS
     Route: 048
     Dates: start: 2006

REACTIONS (10)
  - Wrong technique in drug usage process [Not Recovered/Not Resolved]
  - Poor quality drug administered [Not Recovered/Not Resolved]
  - Application site erosion [Not Recovered/Not Resolved]
  - Scab [Not Recovered/Not Resolved]
  - Wrong technique in drug usage process [Not Recovered/Not Resolved]
  - Product quality issue [Unknown]
  - Product quality issue [Unknown]
  - Product quality issue [Unknown]
  - Condition aggravated [Not Recovered/Not Resolved]
  - Incorrect drug administration duration [Recovered/Resolved]
